FAERS Safety Report 7751530-6 (Version None)
Quarter: 2011Q3

REPORT INFORMATION
  Report Type: 
  Country: None (occurrence: None)
  Receive Date: 20110914
  Receipt Date: 20110907
  Transmission Date: 20111222
  Serious: Yes (Other)
  Sender: FDA-Public Use
  Company Number: PHHY2011CL80545

PATIENT
  Age: 69 Year
  Sex: Female

DRUGS (3)
  1. PURID [Concomitant]
  2. ZOLEDRONOC ACID [Suspect]
     Indication: OSTEOPOROSIS
     Dosage: 5 MG, UNK
     Route: 042
     Dates: start: 20110830
  3. GLAFORNIL [Concomitant]

REACTIONS (3)
  - DENTAL CARIES [None]
  - CYSTITIS [None]
  - DYSURIA [None]
